FAERS Safety Report 7032138-7 (Version None)
Quarter: 2010Q4

REPORT INFORMATION
  Report Type: 
  Country: None (occurrence: None)
  Receive Date: 20101007
  Receipt Date: 20091231
  Transmission Date: 20110411
  Serious: Yes (Hospitalization)
  Sender: FDA-Public Use
  Company Number: US-BRISTOL-MYERS SQUIBB COMPANY-14918973

PATIENT
  Sex: Female

DRUGS (5)
  1. DASATINIB [Suspect]
     Indication: COLORECTAL CANCER METASTATIC
     Dosage: LAST DOSE- 01DEC09
     Dates: end: 20091216
  2. CETUXIMAB [Suspect]
     Indication: COLORECTAL CANCER METASTATIC
     Dosage: LAST DOSE- 25NOV09
     Dates: end: 20091216
  3. FLUOROURACIL [Suspect]
     Indication: COLORECTAL CANCER METASTATIC
     Dosage: LAST DOSE- 18NOV09
     Dates: end: 20091216
  4. FOLINIC ACID [Suspect]
     Indication: COLORECTAL CANCER METASTATIC
     Dosage: LAST DOSE- 18NOV09
     Dates: end: 20091216
  5. OXALIPLATIN [Suspect]
     Indication: COLORECTAL CANCER METASTATIC
     Dosage: LAST DOSE- 18NOV09
     Dates: end: 20091216

REACTIONS (3)
  - MYOCARDIAL INFARCTION [None]
  - PLEURAL EFFUSION [None]
  - RESPIRATORY DISTRESS [None]
